FAERS Safety Report 9315108 (Version 1)
Quarter: 2013Q2

REPORT INFORMATION
  Report Type: Spontaneous
  Country: GB (occurrence: GB)
  Receive Date: 20130529
  Receipt Date: 20130529
  Transmission Date: 20140414
  Serious: Yes (Hospitalization, Other)
  Sender: FDA-Public Use
  Company Number: GB-JNJFOC-20130308998

PATIENT
  Age: 64 Year
  Sex: Male
  Weight: 81 kg

DRUGS (13)
  1. ZYTIGA [Suspect]
     Indication: PROSTATE CANCER
     Route: 048
     Dates: start: 20121107, end: 20130220
  2. PREDNISONE [Concomitant]
     Indication: PRODUCT USED FOR UNKNOWN INDICATION
     Route: 065
  3. BISOPROLOL [Concomitant]
     Route: 065
  4. BISOPROLOL [Concomitant]
     Route: 065
  5. DOXAZOSIN [Concomitant]
     Route: 065
  6. FUROSEMIDE [Concomitant]
     Route: 065
  7. FLUOXETINE [Concomitant]
     Route: 065
  8. LERCANIDIPINE [Concomitant]
     Route: 065
  9. SODIUM BICARBONATE [Concomitant]
     Route: 065
  10. ZOPICLONE [Concomitant]
     Route: 065
  11. ALFACALCIDOL [Concomitant]
     Route: 065
  12. ASPIRIN [Concomitant]
     Route: 065
  13. CLONAZEPAM [Concomitant]
     Route: 065

REACTIONS (4)
  - Atrial fibrillation [Recovered/Resolved]
  - Hypertension [Unknown]
  - Ejection fraction decreased [Unknown]
  - Electrocardiogram T wave inversion [Unknown]
